FAERS Safety Report 11934250 (Version 1)
Quarter: 2016Q1

REPORT INFORMATION
  Report Type: Spontaneous
  Country: US (occurrence: None)
  Receive Date: 20160120
  Receipt Date: 20160120
  Transmission Date: 20160526
  Serious: No
  Sender: FDA-Public Use
  Company Number: None

PATIENT
  Age: 68 Year
  Sex: Female

DRUGS (1)
  1. INTRON A [Suspect]
     Active Substance: INTERFERON ALFA-2B
     Dosage: 1.5 MILLION UNITS ?DAILY?SUBQ?
     Dates: start: 201507

REACTIONS (5)
  - Nausea [None]
  - Arthralgia [None]
  - Fatigue [None]
  - Headache [None]
  - Weight decreased [None]
